FAERS Safety Report 8777896 (Version 1)
Quarter: 2012Q4

REPORT INFORMATION
  Report Type: 
  Country: GB (occurrence: GB)
  Receive Date: 20120911
  Receipt Date: 20120911
  Transmission Date: 20130627
  Serious: Yes (Other)
  Sender: FDA-Public Use
  Company Number: PHFR2012GB004863

PATIENT
  Age: 19 Year
  Sex: Male

DRUGS (10)
  1. CLOZAPINE [Suspect]
     Dosage: 350 mg, in the morning, 450 mg nocte
     Dates: start: 2001
  2. LAMOTRIGIN [Concomitant]
     Dosage: 300 mg, BD
  3. LITHIUM [Concomitant]
     Dosage: 600 mg, QD
  4. LITHIUM [Concomitant]
     Dosage: 800 mg, UNK
  5. AMISULPRIDE [Concomitant]
     Dosage: 400 mg, UNK
  6. CLONAZEPAM [Concomitant]
     Dosage: 0.5 mg, QD
  7. ESCITALOPRAM [Concomitant]
     Dosage: 10 mg, in the morning
  8. MELPERONE [Concomitant]
  9. VALPROATE SODIUM [Concomitant]
     Dosage: 200 mg, BD
     Dates: start: 200510
  10. ANTIPSYCHOTICS [Concomitant]
     Dates: start: 200806

REACTIONS (17)
  - Schizophrenia, paranoid type [Unknown]
  - Psychotic behaviour [Unknown]
  - Psychotic disorder [Unknown]
  - Mental impairment [Unknown]
  - Abnormal behaviour [Unknown]
  - Hallucination, auditory [Unknown]
  - Epilepsy [Unknown]
  - Petit mal epilepsy [Unknown]
  - Food aversion [Unknown]
  - Decreased appetite [Unknown]
  - Weight decreased [Unknown]
  - Dandruff [Unknown]
  - Dry skin [Unknown]
  - Anxiety [Unknown]
  - Dry mouth [Unknown]
  - Neutropenia [Unknown]
  - Agitation [Unknown]
